FAERS Safety Report 20851741 (Version 1)
Quarter: 2022Q2

REPORT INFORMATION
  Report Type: Spontaneous
  Country: ES (occurrence: ES)
  Receive Date: 20220520
  Receipt Date: 20220520
  Transmission Date: 20220721
  Serious: Yes (Other)
  Sender: FDA-Public Use
  Company Number: ES-AEMPS-1177760

PATIENT
  Age: 76 Year
  Sex: Male

DRUGS (5)
  1. ERTAPENEM [Suspect]
     Active Substance: ERTAPENEM
     Indication: Urinary tract infection
     Dosage: 1000 MILLIGRAM, ONCE A DAY (1000.0 MG C/24 H)
     Route: 042
     Dates: start: 20201205, end: 20201208
  2. ATROVENT [Concomitant]
     Active Substance: IPRATROPIUM BROMIDE
     Indication: Bronchial carcinoma
     Dosage: 40 MICROGRAM, FOUR TIMES/DAY (40.0 MCG EVERY 6 HOURS)
     Route: 050
     Dates: start: 20200608
  3. MORPHINE [Concomitant]
     Active Substance: MORPHINE
     Indication: Prostate cancer
     Dosage: 10 MILLIGRAM, 3 TIMES A DAY (10.0 MG EVERY 4 HOURS)
     Route: 048
     Dates: start: 20200909
  4. ACETAMINOPHEN [Concomitant]
     Active Substance: ACETAMINOPHEN
     Indication: Product used for unknown indication
     Dosage: 1 GRAM (1.0 G DECODE)
     Route: 048
     Dates: start: 20200109
  5. RENUTRYL [Concomitant]
     Indication: Bronchial carcinoma
     Dosage: UNK (300.0 ML DECOCE)
     Route: 048
     Dates: start: 20201109

REACTIONS (1)
  - Toxic skin eruption [Recovered/Resolved]

NARRATIVE: CASE EVENT DATE: 20201208
